FAERS Safety Report 5933487-3 (Version None)
Quarter: 2008Q4

REPORT INFORMATION
  Report Type: 
  Country: None (occurrence: None)
  Receive Date: 20081024
  Receipt Date: 20081016
  Transmission Date: 20090506
  Serious: Yes (Other)
  Sender: FDA-Public Use
  Company Number: 2008SP018752

PATIENT
  Age: 52 Year
  Sex: Male

DRUGS (7)
  1. RIBAVIRIN [Suspect]
     Indication: HEPATITIS C
     Dosage: PO; PO; PO
     Route: 048
     Dates: start: 19910101
  2. RIBAVIRIN [Suspect]
     Indication: HEPATITIS C
     Dosage: PO; PO; PO
     Route: 048
     Dates: start: 19980101
  3. RIBAVIRIN [Suspect]
     Indication: HEPATITIS C
     Dosage: PO; PO; PO
     Route: 048
     Dates: start: 20080926
  4. INTRON A [Suspect]
     Indication: HEPATITIS C
     Dates: start: 19920101
  5. INTRON A [Suspect]
     Indication: HEPATITIS C
     Dates: start: 19980101
  6. INTRON A [Suspect]
     Indication: HEPATITIS C
     Dates: start: 20080926
  7. WELLBUTRIN [Suspect]
     Indication: SMOKING CESSATION THERAPY

REACTIONS (10)
  - AGGRESSION [None]
  - CHONDROPATHY [None]
  - HEPATIC CIRRHOSIS [None]
  - INSOMNIA [None]
  - IRRITABILITY [None]
  - NAUSEA [None]
  - NO THERAPEUTIC RESPONSE [None]
  - PAIN [None]
  - RESTLESSNESS [None]
  - TYPE 1 DIABETES MELLITUS [None]
